FAERS Safety Report 9097199 (Version 2)
Quarter: 2013Q2

REPORT INFORMATION
  Report Type: Spontaneous
  Country: FR (occurrence: FR)
  Receive Date: 20130212
  Receipt Date: 20130416
  Transmission Date: 20140414
  Serious: Yes (Other)
  Sender: FDA-Public Use
  Company Number: FR-PFIZER INC-2013052611

PATIENT
  Age: 18 Month
  Sex: Male

DRUGS (2)
  1. DEBRIDAT [Suspect]
     Dosage: UNK
     Dates: start: 20130202
  2. ADVIL [Suspect]
     Dosage: UNK
     Dates: start: 20130202

REACTIONS (1)
  - Convulsion [Unknown]
